FAERS Safety Report 8942145 (Version 1)
Quarter: 2012Q4

REPORT INFORMATION
  Report Type: 
  Country: DE (occurrence: DE)
  Receive Date: 20121130
  Receipt Date: 20121130
  Transmission Date: 20130627
  Serious: Yes (Other)
  Sender: FDA-Public Use
  Company Number: DE-GLAXOSMITHKLINE-D0077998A

PATIENT

DRUGS (5)
  1. VIANI FORTE [Suspect]
     Indication: ASTHMA
     Route: 055
  2. ATROVENT [Suspect]
     Indication: ASTHMA
     Route: 065
  3. PREDNISOLONE [Suspect]
     Indication: ASTHMA
     Dosage: 10MG per day
     Route: 065
  4. THEOPHYLLIN [Suspect]
     Indication: ASTHMA
     Dosage: 250MG per day
     Route: 065
  5. BEROTEC [Suspect]
     Indication: ASTHMA
     Route: 065

REACTIONS (4)
  - Allergic granulomatous angiitis [Unknown]
  - Productive cough [Unknown]
  - Dyspnoea [Unknown]
  - Asthma [Unknown]
